FAERS Safety Report 16353814 (Version 1)
Quarter: 2019Q2

REPORT INFORMATION
  Report Type: Spontaneous
  Country: AU (occurrence: AU)
  Receive Date: 20190524
  Receipt Date: 20190524
  Transmission Date: 20190711
  Serious: Yes (Hospitalization)
  Sender: FDA-Public Use
  Company Number: PHHY2019AU116105

PATIENT
  Age: 16 Year
  Sex: Female

DRUGS (2)
  1. HYDROXYCHLOROQUINE [Suspect]
     Active Substance: HYDROXYCHLOROQUINE
     Indication: LUPUS-LIKE SYNDROME
     Dosage: 100 DF, UNK
     Route: 048
  2. PREDNISOLONE. [Concomitant]
     Active Substance: PREDNISOLONE
     Indication: LUPUS-LIKE SYNDROME
     Dosage: UNK
     Route: 048

REACTIONS (4)
  - Depressed level of consciousness [Recovering/Resolving]
  - Hypotension [Recovering/Resolving]
  - Intentional overdose [Recovering/Resolving]
  - Electrolyte imbalance [Recovering/Resolving]
